FAERS Safety Report 19188682 (Version 1)
Quarter: 2021Q2

REPORT INFORMATION
  Report Type: Report from Study
  Country: US (occurrence: US)
  Receive Date: 20210428
  Receipt Date: 20210428
  Transmission Date: 20210717
  Serious: No
  Sender: FDA-Public Use
  Company Number: NVSC2021US095277

PATIENT
  Age: 73 Year
  Sex: Male

DRUGS (1)
  1. GILENYA [Suspect]
     Active Substance: FINGOLIMOD HYDROCHLORIDE
     Indication: PRODUCT USED FOR UNKNOWN INDICATION
     Dosage: 0.5 MG
     Route: 048
     Dates: start: 20210425

REACTIONS (6)
  - Rhinorrhoea [Recovered/Resolved]
  - Fatigue [Recovered/Resolved]
  - Cough [Recovered/Resolved]
  - Heart rate decreased [Recovered/Resolved]
  - Hypersensitivity [Recovered/Resolved]
  - Dry throat [Recovered/Resolved]

NARRATIVE: CASE EVENT DATE: 20210425
